FAERS Safety Report 18518676 (Version 1)
Quarter: 2020Q4

REPORT INFORMATION
  Report Type: Spontaneous
  Country: US (occurrence: US)
  Receive Date: 20201118
  Receipt Date: 20201118
  Transmission Date: 20210114
  Serious: Yes (Death, Other)
  Sender: FDA-Public Use
  Company Number: US-PURDUE-USA-2020-0165237

PATIENT
  Age: 56 Year
  Sex: Female

DRUGS (1)
  1. OXYCONTIN [Suspect]
     Active Substance: OXYCODONE HYDROCHLORIDE
     Indication: INJURY
     Dosage: UNK
     Route: 048

REACTIONS (5)
  - Completed suicide [Fatal]
  - Depression [Unknown]
  - Drug dependence [Unknown]
  - Blood carbon monoxide [Fatal]
  - Overdose [Unknown]

NARRATIVE: CASE EVENT DATE: 20070407
